APPROVED DRUG PRODUCT: METOPROLOL TARTRATE
Active Ingredient: METOPROLOL TARTRATE
Strength: 100MG
Dosage Form/Route: TABLET;ORAL
Application: A077739 | Product #003 | TE Code: AB
Applicant: AUROBINDO PHARMA LTD
Approved: Sep 11, 2007 | RLD: No | RS: No | Type: RX